FAERS Safety Report 4582112-5 (Version None)
Quarter: 2005Q1

REPORT INFORMATION
  Report Type: 
  Country: None (occurrence: None)
  Receive Date: 20050119
  Receipt Date: 20031229
  Transmission Date: 20050727
  Serious: Yes (Other)
  Sender: FDA-Public Use
  Company Number: A03200303055

PATIENT
  Age: 76 Year
  Sex: Male

DRUGS (4)
  1. PLAVIX [Suspect]
     Indication: STENT PLACEMENT
     Dosage: 75 MG QD - ORAL
     Route: 048
     Dates: start: 20030501
  2. ASPIRIN [Suspect]
     Dosage: 81 MG QD - ORAL
     Route: 048
  3. VALSARTAN [Concomitant]
  4. LANSOPRAZOLE [Concomitant]

REACTIONS (4)
  - HAEMOPTYSIS [None]
  - INFLUENZA LIKE ILLNESS [None]
  - POLLAKIURIA [None]
  - PYREXIA [None]
